FAERS Safety Report 16734613 (Version 1)
Quarter: 2019Q3

REPORT INFORMATION
  Report Type: Spontaneous
  Country: DE (occurrence: DE)
  Receive Date: 20190823
  Receipt Date: 20190823
  Transmission Date: 20191005
  Serious: Yes (Hospitalization)
  Sender: FDA-Public Use
  Company Number: DE-TEVA-2019-DE-1095752

PATIENT
  Age: 78 Year
  Sex: Female

DRUGS (8)
  1. FUROSEMID [Concomitant]
     Active Substance: FUROSEMIDE
     Dosage: 20 MG, 1-0-0-0
  2. PLAVIX [Suspect]
     Active Substance: CLOPIDOGREL BISULFATE
     Dosage: 75 MG, 1-0-0-0
  3. SIMVASTATIN. [Concomitant]
     Active Substance: SIMVASTATIN
     Dosage: 40 MG, 0-0-1-0
  4. METAMIZOL [Concomitant]
     Active Substance: METAMIZOLE SODIUM
     Dosage: 500 MG, 1-1-1-1
  5. ASS 100 [Suspect]
     Active Substance: ASPIRIN
     Dosage: 100 MG, 0-0-1-0
  6. EXFORGE HCT 160MG/5MG/25MG [Concomitant]
     Dosage: 160|5|25 MG, 1-0-0-0
  7. METOPROLOL. [Concomitant]
     Active Substance: METOPROLOL
     Dosage: NK MG, 1-0-0-0
  8. PREGABALIN. [Concomitant]
     Active Substance: PREGABALIN
     Dosage: 50 MG, 1-0-1-0

REACTIONS (1)
  - Bleeding varicose vein [Unknown]

NARRATIVE: CASE EVENT DATE: 20171128
